FAERS Safety Report 8059609-9 (Version None)
Quarter: 2012Q1

REPORT INFORMATION
  Report Type: 
  Country: None (occurrence: None)
  Receive Date: 20120119
  Receipt Date: 20120119
  Transmission Date: 20120608
  Serious: Yes (Life-Threatening, Hospitalization)
  Sender: FDA-Public Use
  Company Number: None

PATIENT
  Age: 88 Year
  Sex: Male
  Weight: 89.6 kg

DRUGS (2)
  1. ASPIRIN [Suspect]
     Indication: CEREBROVASCULAR ACCIDENT PROPHYLAXIS
     Dosage: 81 MG EVERY DAY PO
     Route: 048
     Dates: start: 20111011, end: 20111101
  2. NAPROXEN [Suspect]
     Indication: PAIN
     Dosage: 250 MG BID PO
     Route: 048
     Dates: start: 20070710, end: 20110928

REACTIONS (5)
  - DIARRHOEA [None]
  - DIZZINESS [None]
  - MELAENA [None]
  - HAEMORRHAGE [None]
  - ANAEMIA [None]
